FAERS Safety Report 19024306 (Version 1)
Quarter: 2021Q1

REPORT INFORMATION
  Report Type: Spontaneous
  Country: US (occurrence: US)
  Receive Date: 20210318
  Receipt Date: 20210318
  Transmission Date: 20210420
  Serious: No
  Sender: FDA-Public Use
  Company Number: US-ASTRAZENECA-2021A102918

PATIENT
  Age: 714 Month
  Sex: Male

DRUGS (3)
  1. PEPCID AC [Concomitant]
     Active Substance: FAMOTIDINE
     Indication: GASTROOESOPHAGEAL REFLUX DISEASE
     Route: 065
  2. CALQUENCE [Suspect]
     Active Substance: ACALABRUTINIB
     Route: 048
  3. MUCINEX [Concomitant]
     Active Substance: GUAIFENESIN
     Indication: COUGH
     Route: 065

REACTIONS (4)
  - Gastrooesophageal reflux disease [Unknown]
  - Upper-airway cough syndrome [Unknown]
  - Cough [Not Recovered/Not Resolved]
  - Oropharyngeal discomfort [Unknown]

NARRATIVE: CASE EVENT DATE: 202007
